FAERS Safety Report 9439769 (Version 1)
Quarter: 2013Q3

REPORT INFORMATION
  Report Type: Spontaneous
  Country: US (occurrence: None)
  Receive Date: 20130802
  Receipt Date: 20130802
  Transmission Date: 20140515
  Serious: No
  Sender: FDA-Public Use
  Company Number: None

PATIENT
  Sex: Female

DRUGS (3)
  1. ROPINIROLE [Suspect]
     Indication: RESTLESS LEGS SYNDROME
     Route: 048
     Dates: start: 20130719, end: 20130719
  2. DEXIUM [Concomitant]
  3. DOXYCYC [Concomitant]

REACTIONS (3)
  - Influenza [None]
  - Malaise [None]
  - Vomiting [None]
